FAERS Safety Report 9213279 (Version 4)
Quarter: 2014Q3

REPORT INFORMATION
  Report Type: Spontaneous
  Country: US (occurrence: US)
  Receive Date: 20130405
  Receipt Date: 20140730
  Transmission Date: 20150326
  Serious: Yes (Hospitalization)
  Sender: FDA-Public Use
  Company Number: US-BAYER-2013-042004

PATIENT
  Age: 25 Year
  Sex: Female
  Weight: 72.56 kg

DRUGS (2)
  1. IBUPROFEN. [Concomitant]
     Active Substance: IBUPROFEN
     Dosage: 800 MG, UNK
  2. MIRENA [Suspect]
     Active Substance: LEVONORGESTREL
     Indication: CONTRACEPTION
     Dosage: 20 MCG/24HR, CONT
     Route: 015
     Dates: start: 20090508, end: 20110512

REACTIONS (8)
  - Anxiety [None]
  - Off label use [None]
  - Pelvic pain [None]
  - Injury [None]
  - Pain [None]
  - Emotional distress [None]
  - Device issue [None]
  - Uterine perforation [None]

NARRATIVE: CASE EVENT DATE: 201105
